FAERS Safety Report 18491874 (Version 6)
Quarter: 2020Q4

REPORT INFORMATION
  Report Type: Spontaneous
  Country: ES (occurrence: ES)
  Receive Date: 20201111
  Receipt Date: 20201224
  Transmission Date: 20210114
  Serious: Yes (Hospitalization, Other)
  Sender: FDA-Public Use
  Company Number: NVSC2020ES300700

PATIENT
  Age: 32 Year
  Sex: Female

DRUGS (6)
  1. AZITHROMYCIN ANHYDROUS. [Interacting]
     Active Substance: AZITHROMYCIN ANHYDROUS
     Indication: COVID-19
     Dosage: 500 MG, QD (AZITHROMYCIN 500 MG EVERY 24 HOURS)
     Route: 065
  2. HYDROXYCHLOROQUINE [Interacting]
     Active Substance: HYDROXYCHLOROQUINE
     Dosage: 200 MG, Q12H (FIRST DAY DOSE CHARGE)
     Route: 065
  3. OMEPRAZOLE. [Suspect]
     Active Substance: OMEPRAZOLE
     Indication: HIATUS HERNIA
     Dosage: 20 MG, Q12H 2X / DAY (EVERY 12 HOURS)
     Route: 065
  4. OMEPRAZOLE. [Suspect]
     Active Substance: OMEPRAZOLE
     Dosage: 20 MILLIGRAM, 2X / DAY (EVERY 12 HOURS)
     Route: 065
  5. HYDROXYCHLOROQUINE [Suspect]
     Active Substance: HYDROXYCHLOROQUINE
     Indication: COVID-19
     Dosage: 800 MG, QD (400 MG LODING DOSE EVERY 12 HOURS ON THE FIRST DAY)
     Route: 065
  6. CEFDITOREN [Suspect]
     Active Substance: CEFDITOREN
     Indication: COVID-19
     Dosage: 400 MILLIGRAM, 2X / DAY (EVERY 12 HOURS)
     Route: 065

REACTIONS (10)
  - Cardiac failure [Unknown]
  - Tachycardia [Recovered/Resolved]
  - Extrasystoles [Recovered/Resolved]
  - Cardiac failure chronic [Recovered/Resolved]
  - Dyspnoea exertional [Unknown]
  - Drug interaction [Unknown]
  - Off label use [Unknown]
  - Product use in unapproved indication [Unknown]
  - Mitral valve incompetence [Unknown]
  - COVID-19 [Unknown]
